FAERS Safety Report 12465992 (Version 1)
Quarter: 2016Q2

REPORT INFORMATION
  Report Type: Report from Study
  Country: JP (occurrence: JP)
  Receive Date: 20160614
  Receipt Date: 20160614
  Transmission Date: 20160815
  Serious: Yes (Hospitalization, Other)
  Sender: FDA-Public Use
  Company Number: JP-BRISTOL-MYERS SQUIBB COMPANY-BMS-2016-046191

PATIENT
  Age: 83 Year
  Sex: Female

DRUGS (2)
  1. NIVOLUMAB [Suspect]
     Active Substance: NIVOLUMAB
     Dosage: 1 DF, UNK
     Route: 041
     Dates: start: 20160509, end: 20160509
  2. NIVOLUMAB [Suspect]
     Active Substance: NIVOLUMAB
     Indication: NON-SMALL CELL LUNG CANCER RECURRENT
     Dosage: 1 DF, UNK
     Route: 065
     Dates: start: 20160201, end: 20160201

REACTIONS (4)
  - Hepatic function abnormal [Unknown]
  - Cerebral infarction [Not Recovered/Not Resolved]
  - Metastases to bone [Unknown]
  - Renal impairment [Unknown]

NARRATIVE: CASE EVENT DATE: 20160527
